FAERS Safety Report 15687949 (Version 1)
Quarter: 2018Q4

REPORT INFORMATION
  Report Type: Spontaneous
  Country: US (occurrence: US)
  Receive Date: 20181205
  Receipt Date: 20181205
  Transmission Date: 20190205
  Serious: No
  Sender: FDA-Public Use
  Company Number: US-ROCHE-2182904

PATIENT
  Age: 53 Year
  Sex: Male

DRUGS (3)
  1. COTELLIC [Suspect]
     Active Substance: COBIMETINIB
     Indication: MALIGNANT MELANOMA
     Dosage: DAILY 21/28 DAYS
     Route: 048
     Dates: start: 20180421
  2. ZELBORAF [Suspect]
     Active Substance: VEMURAFENIB
     Indication: MALIGNANT MELANOMA
     Route: 048
     Dates: start: 20180427
  3. COTELLIC [Suspect]
     Active Substance: COBIMETINIB
     Dosage: DAILY 21/28 DAYS
     Route: 048
     Dates: start: 20180421

REACTIONS (3)
  - Decreased appetite [Unknown]
  - Skin depigmentation [Unknown]
  - Hair colour changes [Not Recovered/Not Resolved]

NARRATIVE: CASE EVENT DATE: 20180601
